FAERS Safety Report 5838705-8 (Version None)
Quarter: 2008Q3

REPORT INFORMATION
  Report Type: 
  Country: None (occurrence: None)
  Receive Date: 20080808
  Receipt Date: 20080801
  Transmission Date: 20090109
  Serious: Yes (Hospitalization, Disabling, Other)
  Sender: FDA-Public Use
  Company Number: B0529059A

PATIENT
  Age: 15 Year
  Sex: Female
  Weight: 43 kg

DRUGS (11)
  1. ATRIANCE [Suspect]
     Dosage: 650MGM2 UNKNOWN
     Route: 042
     Dates: start: 20080616
  2. PREDNISON [Concomitant]
     Dosage: 5MG TWICE PER DAY
     Dates: start: 20080201
  3. COTRIM [Concomitant]
     Route: 065
  4. ACETAMINOPHEN [Concomitant]
  5. SLOW-K [Concomitant]
     Dosage: 600MG TWICE PER DAY
     Route: 048
  6. AMLODIPINE [Concomitant]
     Dosage: 7.5MG TWICE PER DAY
  7. VALCYTE [Concomitant]
     Dosage: 675MG TWICE PER DAY
  8. FLUCONAZOLE [Concomitant]
     Dosage: 200MG PER DAY
  9. MOVICOLON [Concomitant]
     Dosage: 20G TWICE PER DAY
     Dates: start: 20080601
  10. IMMUNE GLOBULIN INTRAVENOUS (HUMAN) [Concomitant]
     Route: 051
  11. TRAMAL [Concomitant]
     Indication: PAIN

REACTIONS (8)
  - AXONAL NEUROPATHY [None]
  - DYSSTASIA [None]
  - ENCEPHALOPATHY [None]
  - MOVEMENT DISORDER [None]
  - NEUROPATHY PERIPHERAL [None]
  - PARAESTHESIA [None]
  - PERIPHERAL COLDNESS [None]
  - TACHYCARDIA [None]
